FAERS Safety Report 11552600 (Version 2)
Quarter: 2016Q1

REPORT INFORMATION
  Report Type: Report from Study
  Country: CA (occurrence: CA)
  Receive Date: 20150925
  Receipt Date: 20160209
  Transmission Date: 20160525
  Serious: Yes (Other)
  Sender: FDA-Public Use
  Company Number: CA-JNJFOC-20150913369

PATIENT
  Age: 59 Year
  Sex: Female

DRUGS (1)
  1. SIMPONI [Suspect]
     Active Substance: GOLIMUMAB
     Indication: RHEUMATOID ARTHRITIS
     Route: 058
     Dates: start: 20150107

REACTIONS (4)
  - Inappropriate schedule of drug administration [Unknown]
  - Lower respiratory tract infection [Recovered/Resolved]
  - Sinus disorder [Recovered/Resolved]
  - Blood test abnormal [Unknown]

NARRATIVE: CASE EVENT DATE: 20150911
